FAERS Safety Report 7366057-3 (Version None)
Quarter: 2011Q1

REPORT INFORMATION
  Report Type: 
  Country: None (occurrence: None)
  Receive Date: 20110322
  Receipt Date: 20110308
  Transmission Date: 20110831
  Serious: Yes (Hospitalization)
  Sender: FDA-Public Use
  Company Number: US-JNJFOC-20070705439

PATIENT
  Sex: Male
  Weight: 42 kg

DRUGS (5)
  1. INFLIXIMAB [Suspect]
     Indication: CROHN'S DISEASE
     Route: 042
  2. INFLIXIMAB [Suspect]
     Route: 042
  3. INFLIXIMAB [Suspect]
     Indication: INFLAMMATORY BOWEL DISEASE
     Dosage: TOTAL 4 DOSES
     Route: 042
  4. INFLIXIMAB [Suspect]
     Dosage: TOTAL 4 DOSES
     Route: 042
  5. MESALAMINE [Concomitant]
     Route: 048

REACTIONS (3)
  - PERIRECTAL ABSCESS [None]
  - CELLULITIS [None]
  - INFLAMMATORY BOWEL DISEASE [None]
